FAERS Safety Report 11701219 (Version 1)
Quarter: 2015Q4

REPORT INFORMATION
  Report Type: Spontaneous
  Country: CZ (occurrence: CZ)
  Receive Date: 20151105
  Receipt Date: 20151105
  Transmission Date: 20160304
  Serious: Yes (Hospitalization)
  Sender: FDA-Public Use
  Company Number: CZ-PFIZER INC-2015377780

PATIENT
  Age: 52 Year
  Sex: Female

DRUGS (19)
  1. CLONAZEPAM. [Suspect]
     Active Substance: CLONAZEPAM
     Dosage: UNK
     Route: 065
  2. LITHIUM CARBONATE. [Suspect]
     Active Substance: LITHIUM CARBONATE
     Dosage: UNK
     Route: 065
  3. OMEPRAZOLE. [Suspect]
     Active Substance: OMEPRAZOLE
     Dosage: UNK
     Route: 065
  4. CODEINE PHOSPHATE/PARACETAMOL [Suspect]
     Active Substance: ACETAMINOPHEN\CODEINE PHOSPHATE
     Dosage: UNK
     Route: 065
  5. SAFAPRYN [Suspect]
     Active Substance: ACETAMINOPHEN\ASPIRIN
     Dosage: UNK
     Route: 065
  6. URAPIDIL [Suspect]
     Active Substance: URAPIDIL
     Dosage: UNK
     Route: 065
  7. GUAIFENESIN. [Suspect]
     Active Substance: GUAIFENESIN
     Dosage: UNK
     Route: 065
  8. HALOPERIDOL. [Suspect]
     Active Substance: HALOPERIDOL
     Dosage: UNK
     Route: 065
  9. METAMIZOLE SODIUM/PITOFENONE HYDROCHLORIDE [Suspect]
     Active Substance: METAMIZOLE SODIUM\PITOFENONE HYDROCHLORIDE
     Dosage: UNK
     Route: 065
  10. SUMATRIPTAN SUCCINATE. [Suspect]
     Active Substance: SUMATRIPTAN SUCCINATE
     Dosage: UNK
     Route: 065
  11. FLUVOXAMINE [Suspect]
     Active Substance: FLUVOXAMINE
     Dosage: UNK
     Route: 065
  12. IBUPROFEN. [Suspect]
     Active Substance: IBUPROFEN
     Dosage: UNK
     Route: 065
  13. QUETIAPINE [Suspect]
     Active Substance: QUETIAPINE
     Dosage: UNK
     Route: 065
  14. OXAZEPAM. [Suspect]
     Active Substance: OXAZEPAM
     Dosage: UNK
     Route: 065
  15. FELODIPINE. [Suspect]
     Active Substance: FELODIPINE
     Dosage: UNK
     Route: 065
  16. GLYCERIN. [Suspect]
     Active Substance: GLYCERIN
     Dosage: UNK
     Route: 054
  17. RAMIPRIL. [Suspect]
     Active Substance: RAMIPRIL
     Dosage: UNK
     Route: 065
  18. DICLOFENAC [Suspect]
     Active Substance: DICLOFENAC
     Dosage: UNK
     Route: 065
  19. CLOMIPRAMINE HYDROCHLORIDE. [Suspect]
     Active Substance: CLOMIPRAMINE HYDROCHLORIDE
     Dosage: UNK
     Route: 065

REACTIONS (16)
  - Acute kidney injury [Recovered/Resolved]
  - Poor personal hygiene [None]
  - Blood creatinine increased [Recovered/Resolved]
  - Hepatic enzyme increased [Recovered/Resolved]
  - Anaemia [None]
  - Thirst [Recovered/Resolved]
  - Lymphoedema [None]
  - Tubulointerstitial nephritis [None]
  - Toxicity to various agents [Recovered/Resolved]
  - Toxicity to various agents [None]
  - Alcohol use [None]
  - Dehydration [None]
  - Altered state of consciousness [Recovered/Resolved]
  - Drug level increased [Recovered/Resolved]
  - Obesity [None]
  - Sopor [None]
